FAERS Safety Report 25370075 (Version 1)
Quarter: 2025Q2

REPORT INFORMATION
  Report Type: Report from Study
  Country: US (occurrence: US)
  Receive Date: 20250528
  Receipt Date: 20250528
  Transmission Date: 20250716
  Serious: Yes (Hospitalization, Other)
  Sender: MALLINCKRODT
  Company Number: US-MALLINCKRODT-MNK202503009

PATIENT
  Sex: Female

DRUGS (2)
  1. CORTICOTROPIN [Suspect]
     Active Substance: CORTICOTROPIN
     Indication: Infantile spasms
  2. CORTICOTROPIN [Suspect]
     Active Substance: CORTICOTROPIN
     Indication: Epilepsy

REACTIONS (6)
  - Oxygen saturation decreased [Recovered/Resolved]
  - Seizure [Recovered/Resolved]
  - Pneumonia [Unknown]
  - Adrenal insufficiency [Unknown]
  - Heart rate increased [Unknown]
  - Pyrexia [Recovered/Resolved]
